FAERS Safety Report 6317169-4 (Version None)
Quarter: 2009Q3

REPORT INFORMATION
  Report Type: 
  Country: None (occurrence: None)
  Receive Date: 20090819
  Receipt Date: 20090807
  Transmission Date: 20100115
  Serious: No
  Sender: FDA-Public Use
  Company Number: 238293K09USA

PATIENT
  Age: 55 Year
  Sex: Female
  Weight: 53 kg

DRUGS (6)
  1. REBIF [Suspect]
     Indication: MULTIPLE SCLEROSIS
     Dosage: 44 MCG, 3 IN 1 WEEKS, SUBCUTANEOUS
     Route: 058
     Dates: start: 20090527
  2. ALEVE [Suspect]
     Indication: PREMEDICATION
     Dosage: NOT REPORTED, 1 IN 1 WEEKS
     Dates: end: 20090701
  3. ASPIRIN [Suspect]
     Dosage: NOT REPORTED, 1 IN 1 DAYS
     Dates: end: 20090726
  4. SIMVASTATIN [Concomitant]
  5. LEVOTHROID [Concomitant]
  6. VITAMIN D (VITAMIN D NOS) [Concomitant]

REACTIONS (2)
  - EAR DISORDER [None]
  - EAR HAEMORRHAGE [None]
